FAERS Safety Report 6531267-1 (Version None)
Quarter: 2010Q1

REPORT INFORMATION
  Report Type: 
  Country: None (occurrence: None)
  Receive Date: 20100108
  Receipt Date: 20100104
  Transmission Date: 20100710
  Serious: Yes (Life-Threatening)
  Sender: FDA-Public Use
  Company Number: FR-ASTRAZENECA-2010SE00093

PATIENT
  Age: 21099 Day
  Sex: Female

DRUGS (10)
  1. NEXIUM IV [Suspect]
     Indication: PERFORATED ULCER
     Route: 042
     Dates: start: 20091125, end: 20091209
  2. TIENAM [Suspect]
     Route: 042
     Dates: start: 20091124, end: 20091209
  3. INIPOMP [Suspect]
     Route: 042
     Dates: start: 20091209, end: 20091210
  4. TRIFLUCAN [Concomitant]
     Route: 042
     Dates: start: 20091121, end: 20091205
  5. CONTRAMAL [Concomitant]
     Route: 042
     Dates: start: 20091204
  6. MORPHINE [Concomitant]
     Route: 042
     Dates: start: 20091110
  7. PARACETAMOL [Concomitant]
     Route: 042
     Dates: start: 20091110
  8. NORADRENALINE [Concomitant]
     Route: 042
     Dates: start: 20091110
  9. INSULIN [Concomitant]
     Route: 042
     Dates: start: 20091110
  10. ALBUMIN (HUMAN) [Concomitant]
     Route: 042
     Dates: start: 20091110

REACTIONS (5)
  - HAEMATURIA [None]
  - HAEMORRHAGIC ASCITES [None]
  - MOUTH HAEMORRHAGE [None]
  - PURPURA [None]
  - THROMBOCYTOPENIA [None]
